FAERS Safety Report 17776719 (Version 1)
Quarter: 2020Q2

REPORT INFORMATION
  Report Type: Spontaneous
  Country: DE (occurrence: DE)
  Receive Date: 20200513
  Receipt Date: 20200513
  Transmission Date: 20200714
  Serious: Yes (Life-Threatening, Hospitalization)
  Sender: FDA-Public Use
  Company Number: DE-JNJFOC-20200513744

PATIENT
  Age: 88 Year
  Sex: Male

DRUGS (9)
  1. RIVAROXABAN [Concomitant]
     Active Substance: RIVAROXABAN
     Dosage: 15 MG, 1-0-0-0, TABLETTEN
  2. PARACETAMOL [Concomitant]
     Active Substance: ACETAMINOPHEN
     Dosage: 500 MG, BEI BEDARF, SUPPOSITORIEN; AS REQUIRED
  3. LEVOMEPROMAZINE [Suspect]
     Active Substance: LEVOMEPROMAZINE
     Indication: PRODUCT USED FOR UNKNOWN INDICATION
     Dosage: 40 MG, BEI BEDARF, TROPFEN
     Route: 065
  4. METOPROLOL. [Concomitant]
     Active Substance: METOPROLOL
     Dosage: 23.75 MG, 1-0-1-0, TABLETTEN
  5. BRINZOLAMID [Concomitant]
     Dosage: NK MG, 1-0-1-0, TROPFEN
  6. MACROGOL [Concomitant]
     Active Substance: POLYETHYLENE GLYCOLS
     Dosage: NK MG, BEI BEDARF
  7. DEXPANTHENOL. [Concomitant]
     Active Substance: DEXPANTHENOL
     Dosage: 50 MG, 1-0-1-0, SALBE
  8. CALCIUM [Concomitant]
     Active Substance: CALCIUM
     Dosage: 500 MG, 1-0-0-0, BRAUSETABLETTEN
     Route: 065
  9. RISPERDAL [Suspect]
     Active Substance: RISPERIDONE
     Indication: PRODUCT USED FOR UNKNOWN INDICATION
     Dosage: 0.5 MG, 0-0-0-1, TABLETTEN
     Route: 065

REACTIONS (1)
  - Fall [Unknown]

NARRATIVE: CASE EVENT DATE: 20200112
